FAERS Safety Report 17701567 (Version 1)
Quarter: 2020Q2

REPORT INFORMATION
  Report Type: Spontaneous
  Country: US (occurrence: US)
  Receive Date: 20200424
  Receipt Date: 20200424
  Transmission Date: 20200714
  Serious: No
  Sender: FDA-Public Use
  Company Number: US-ELI_LILLY_AND_COMPANY-US202004008181

PATIENT
  Sex: Male

DRUGS (2)
  1. HUMALOG [Suspect]
     Active Substance: INSULIN LISPRO
     Dosage: 5 U, UNKNOWN VIA SLIDING SCALE
     Route: 058
  2. HUMALOG [Suspect]
     Active Substance: INSULIN LISPRO
     Indication: TYPE 1 DIABETES MELLITUS
     Dosage: 5 U, UNKNOWN VIA SLIDING SCALE
     Route: 058
     Dates: start: 201907

REACTIONS (3)
  - Incorrect product administration duration [Unknown]
  - Blood glucose increased [Unknown]
  - Drug ineffective [Unknown]
